FAERS Safety Report 22160962 (Version 1)
Quarter: 2023Q1

REPORT INFORMATION
  Report Type: Spontaneous
  Country: US (occurrence: None)
  Receive Date: 20230331
  Receipt Date: 20230331
  Transmission Date: 20230417
  Serious: Yes (Disabling, Other)
  Sender: FDA-Public Use
  Company Number: None

PATIENT
  Age: 61 Year
  Sex: Female

DRUGS (1)
  1. LIPITOR [Suspect]
     Active Substance: ATORVASTATIN CALCIUM
     Indication: Blood cholesterol increased

REACTIONS (10)
  - Myopathy [None]
  - Dermatitis [None]
  - Anxiety [None]
  - Memory impairment [None]
  - Vision blurred [None]
  - Inflammation [None]
  - Feeling abnormal [None]
  - Rash [None]
  - Gait inability [None]
  - Lipoedema [None]

NARRATIVE: CASE EVENT DATE: 20221227
